FAERS Safety Report 5408369-6 (Version None)
Quarter: 2007Q3

REPORT INFORMATION
  Report Type: 
  Country: None (occurrence: None)
  Receive Date: 20070806
  Receipt Date: 20070806
  Transmission Date: 20080115
  Serious: Yes (Hospitalization)
  Sender: FDA-Public Use
  Company Number: None

PATIENT
  Age: 62 Year
  Sex: Male

DRUGS (1)
  1. CIPROFLOXACIN [Suspect]
     Indication: UPPER RESPIRATORY TRACT INFECTION
     Dosage: 400MG BID IV
     Route: 042
     Dates: start: 20070519, end: 20070519

REACTIONS (7)
  - ABNORMAL FAECES [None]
  - ALLERGY TO ARTHROPOD STING [None]
  - BLOOD PRESSURE SYSTOLIC DECREASED [None]
  - DRUG INEFFECTIVE [None]
  - ERYTHEMA [None]
  - GRIMACING [None]
  - TACHYCARDIA [None]
